FAERS Safety Report 19208960 (Version 1)
Quarter: 2021Q2

REPORT INFORMATION
  Report Type: Spontaneous
  Country: US (occurrence: US)
  Receive Date: 20210504
  Receipt Date: 20210504
  Transmission Date: 20210717
  Serious: Yes (Death, Hospitalization, Other)
  Sender: FDA-Public Use
  Company Number: US-SUN PHARMACEUTICAL INDUSTRIES LTD-2021R1-294307

PATIENT
  Age: 29 Year
  Sex: Male

DRUGS (10)
  1. ECULIZUMAB [Suspect]
     Active Substance: ECULIZUMAB
     Dosage: 900 MG WEEKLY ( 4 DOSES)
     Route: 042
  2. GEMCITABINE. [Suspect]
     Active Substance: GEMCITABINE
     Dosage: 700 MG/M2 , UNK (OVER 25 DAYS)
     Route: 042
  3. GEMCITABINE. [Suspect]
     Active Substance: GEMCITABINE
     Dosage: 18,000 MG/M2 , UNK
     Route: 042
  4. ECULIZUMAB [Suspect]
     Active Substance: ECULIZUMAB
     Dosage: 1200 MG EVERY 2 WEEKS
     Route: 042
  5. GEMCITABINE. [Suspect]
     Active Substance: GEMCITABINE
     Dosage: 500 MG/M2 , UNK (OVER 25 DAYS)
     Route: 042
  6. CISPLATIN. [Suspect]
     Active Substance: CISPLATIN
     Indication: CHOLANGIOCARCINOMA
     Dosage: 25 MG/M2 , UNK (9 CYCLES)
     Route: 042
  7. ECULIZUMAB [Suspect]
     Active Substance: ECULIZUMAB
     Indication: THROMBOTIC MICROANGIOPATHY
     Dosage: 900 MG WEEKLY ( 4 DOSES)
     Route: 042
  8. GEMCITABINE. [Suspect]
     Active Substance: GEMCITABINE
     Indication: CHOLANGIOCARCINOMA
     Dosage: 1000 MG/M2 ,UNK (9 CYCLES)
     Route: 042
  9. GEMCITABINE. [Suspect]
     Active Substance: GEMCITABINE
     Dosage: 800 MG/M2 , UNK (OVER 25 DAYS)
     Route: 042
  10. CISPLATIN. [Suspect]
     Active Substance: CISPLATIN
     Dosage: 450 MG/M2 , UNK
     Route: 042

REACTIONS (6)
  - Ascites [Unknown]
  - Splenomegaly [Unknown]
  - Disease progression [Fatal]
  - Mental status changes [Unknown]
  - Myelosuppression [Unknown]
  - Nephrolithiasis [Unknown]
